FAERS Safety Report 25691429 (Version 1)
Quarter: 2025Q3

REPORT INFORMATION
  Report Type: Spontaneous
  Country: EU (occurrence: EU)
  Receive Date: 20250818
  Receipt Date: 20250818
  Transmission Date: 20251020
  Serious: Yes (Other)
  Sender: PFIZER
  Company Number: EU-PFIZER INC-202500162518

PATIENT
  Age: 42 Year
  Sex: Female

DRUGS (14)
  1. DOCETAXEL [Suspect]
     Active Substance: DOCETAXEL
  2. PACLITAXEL [Suspect]
     Active Substance: PACLITAXEL
     Dates: start: 2016
  3. CYCLOPHOSPHAMIDE [Concomitant]
     Active Substance: CYCLOPHOSPHAMIDE
     Indication: Breast cancer
  4. CYCLOPHOSPHAMIDE [Concomitant]
     Active Substance: CYCLOPHOSPHAMIDE
     Indication: Metastases to central nervous system
  5. ZOLEDRONIC ACID [Concomitant]
     Active Substance: ZOLEDRONIC ACID
     Indication: Breast cancer
     Dates: start: 2016
  6. ZOLEDRONIC ACID [Concomitant]
     Active Substance: ZOLEDRONIC ACID
     Indication: Metastases to central nervous system
  7. EPIRUBICIN [Concomitant]
     Active Substance: EPIRUBICIN
     Indication: Breast cancer
  8. EPIRUBICIN [Concomitant]
     Active Substance: EPIRUBICIN
     Indication: Metastases to central nervous system
  9. FLUOROURACIL [Concomitant]
     Active Substance: FLUOROURACIL
     Indication: Breast cancer
  10. FLUOROURACIL [Concomitant]
     Active Substance: FLUOROURACIL
     Indication: Metastases to central nervous system
  11. HYDROXYCHLOROQUINE [Concomitant]
     Active Substance: HYDROXYCHLOROQUINE
     Indication: Rheumatoid arthritis
  12. LEVOTHYROXINE [Concomitant]
     Active Substance: LEVOTHYROXINE
     Indication: Hypothyroidism
  13. LEUPROLIDE ACETATE [Concomitant]
     Active Substance: LEUPROLIDE ACETATE
  14. METHOTREXATE [Concomitant]
     Active Substance: METHOTREXATE
     Indication: Rheumatoid arthritis

REACTIONS (4)
  - Macular oedema [Unknown]
  - Optic neuropathy [Unknown]
  - Retinopathy [Unknown]
  - Ocular toxicity [Unknown]

NARRATIVE: CASE EVENT DATE: 20180101
